FAERS Safety Report 5153296-5 (Version None)
Quarter: 2006Q4

REPORT INFORMATION
  Report Type: 
  Country: None (occurrence: None)
  Receive Date: 20061117
  Receipt Date: 20061114
  Transmission Date: 20070319
  Serious: Yes (Hospitalization, Other)
  Sender: FDA-Public Use
  Company Number: FR-SANOFI-SYNTHELABO-F01200602319

PATIENT
  Sex: Male
  Weight: 65 kg

DRUGS (5)
  1. VEPESID [Suspect]
     Dosage: 100 MG/M2 FOR 5 DAYS Q3W
     Route: 042
     Dates: start: 20060711, end: 20060715
  2. TAXOL [Suspect]
     Route: 042
     Dates: start: 20060707, end: 20060707
  3. BLEOMYCIN [Suspect]
     Dosage: 30 MG/DAY ON D1,8 AND 15 Q3W OR 25 UNIT/DAY AS CONTINUOUS INFUSION FROM D10 TO 14
     Route: 042
     Dates: start: 20060713, end: 20060713
  4. CISPLATIN [Suspect]
     Dosage: 20MG/M2/DAY X5DAYS
     Route: 042
     Dates: start: 20060711, end: 20060715
  5. OXALIPLATIN [Suspect]
     Route: 042
     Dates: start: 20060623, end: 20060623

REACTIONS (5)
  - ANAEMIA [None]
  - FEBRILE BONE MARROW APLASIA [None]
  - NEUTROPENIA [None]
  - PYREXIA [None]
  - THROMBOCYTOPENIA [None]
